FAERS Safety Report 15919224 (Version 1)
Quarter: 2019Q1

REPORT INFORMATION
  Report Type: Spontaneous
  Country: US (occurrence: US)
  Receive Date: 20190205
  Receipt Date: 20190205
  Transmission Date: 20190417
  Serious: No
  Sender: FDA-Public Use
  Company Number: US-ROCHE-2070858

PATIENT
  Age: 61 Year
  Sex: Female
  Weight: 65.83 kg

DRUGS (3)
  1. XOLAIR [Suspect]
     Active Substance: OMALIZUMAB
     Indication: IDIOPATHIC URTICARIA
     Dosage: ONGOING YES
     Route: 058
     Dates: start: 201604
  2. ZYRTEC [Concomitant]
     Active Substance: CETIRIZINE HYDROCHLORIDE
     Dosage: UNKNOWN
     Route: 065
  3. BENADRYL [Concomitant]
     Active Substance: DIPHENHYDRAMINE HYDROCHLORIDE
     Dosage: UP TO 4 PER DAY ;ONGOING: UNKNOWN
     Route: 065

REACTIONS (7)
  - Thermal burn [Unknown]
  - Urticaria [Unknown]
  - Product dose omission [Unknown]
  - Discomfort [Unknown]
  - Eye swelling [Unknown]
  - Pruritus [Unknown]
  - Amnesia [Unknown]

NARRATIVE: CASE EVENT DATE: 201801
